FAERS Safety Report 14811205 (Version 6)
Quarter: 2018Q4

REPORT INFORMATION
  Report Type: Report from Study
  Country: JP (occurrence: JP)
  Receive Date: 20180425
  Receipt Date: 20181029
  Transmission Date: 20190204
  Serious: Yes (Death)
  Sender: FDA-Public Use
  Company Number: JP-BEH-2018090017

PATIENT
  Age: 67 Year
  Sex: Male
  Weight: 70 kg

DRUGS (25)
  1. PLAVIX [Concomitant]
     Active Substance: CLOPIDOGREL BISULFATE
     Dosage: UNK
     Route: 048
     Dates: end: 20180417
  2. BOSMIN                             /00003901/ [Concomitant]
     Active Substance: EPINEPHRINE
     Indication: BLOOD PRESSURE MEASUREMENT
     Dosage: 1 MG, UNK
     Route: 042
     Dates: start: 20180417, end: 20180418
  3. FRESH FROZEN PLASMA [Concomitant]
     Active Substance: HUMAN PLASMA
     Dosage: 200 ML, UNK
     Route: 065
  4. SOLU-CORTEF [Concomitant]
     Active Substance: HYDROCORTISONE SODIUM SUCCINATE
     Indication: SHOCK
     Dosage: 100 MG, UNK
     Route: 042
     Dates: start: 20180417
  5. PIOGLITAZONE. [Concomitant]
     Active Substance: PIOGLITAZONE
     Dosage: UNK
     Route: 048
     Dates: end: 20180417
  6. PARAMIDIN [Concomitant]
     Active Substance: BUCOLOME
     Dosage: UNK
     Route: 048
     Dates: end: 20180417
  7. WARFARIN [Concomitant]
     Active Substance: WARFARIN
     Indication: PROPHYLAXIS
     Dosage: 1.5 UNK, UNK
     Route: 048
  8. METGLUCO [Concomitant]
     Active Substance: METFORMIN HYDROCHLORIDE
     Dosage: UNK
     Route: 048
     Dates: end: 20180417
  9. PLATELETS [Concomitant]
     Active Substance: HUMAN PLATELET, ALLOGENIC
     Dosage: 100 ML, UNK
     Route: 065
  10. CIBENOL [Concomitant]
     Active Substance: CIFENLINE
     Dosage: UNK
     Route: 048
     Dates: end: 20180417
  11. ADONA                              /00056903/ [Concomitant]
     Active Substance: CARBAZOCHROME SODIUM SULFONATE
     Indication: HAEMOSTASIS
     Dosage: 100 MG, UNK
     Route: 042
     Dates: start: 20180417
  12. CALCIUM CHLORIDE. [Concomitant]
     Active Substance: CALCIUM CHLORIDE
     Indication: HYPOCALCAEMIA
     Dosage: 20 ML, UNK
     Route: 042
     Dates: start: 20180417, end: 20180418
  13. RED BLOOD CELLS, CONCENTRATED [Concomitant]
     Active Substance: HUMAN RED BLOOD CELL
     Dosage: 160 ML, UNK
     Route: 065
  14. GLIMEPIRIDE. [Concomitant]
     Active Substance: GLIMEPIRIDE
     Dosage: UNK
     Route: 048
     Dates: end: 20180417
  15. WARFARIN [Concomitant]
     Active Substance: WARFARIN
     Indication: ATRIAL FIBRILLATION
     Dosage: 4.5 MG, UNK
     Route: 048
     Dates: start: 20180417
  16. BAYASPIRIN [Concomitant]
     Active Substance: ASPIRIN
     Dosage: 100 MG, UNK
     Route: 048
     Dates: end: 20180417
  17. KAYTWO N [Concomitant]
     Active Substance: MENATETRENONE
     Indication: HAEMOSTASIS
     Dosage: 20 MG, UNK
     Route: 042
     Dates: start: 20180417, end: 20180417
  18. TRANSAMIN [Concomitant]
     Active Substance: TRANEXAMIC ACID
     Indication: HAEMOSTASIS
     Dosage: 1 G, UNK
     Route: 042
     Dates: start: 20180417
  19. MEYLON [Concomitant]
     Active Substance: SODIUM BICARBONATE
     Indication: ACIDOSIS
     Dosage: 250 ML, UNK
     Route: 042
     Dates: start: 20180417, end: 20180418
  20. DOPAMINE [Concomitant]
     Active Substance: DOPAMINE\DOPAMINE HYDROCHLORIDE
     Indication: BLOOD PRESSURE MEASUREMENT
     Dosage: 600 MG, UNK
     Route: 042
     Dates: start: 20180417
  21. BEZAFIBRATE [Concomitant]
     Active Substance: BEZAFIBRATE
     Dosage: UNK
     Route: 048
     Dates: end: 20180417
  22. BERIPLEX P/N [Suspect]
     Active Substance: COAGULATION FACTOR IX HUMAN\COAGULATION FACTOR VII HUMAN\COAGULATION FACTOR X HUMAN\PROTEIN C\PROTEIN S HUMAN\PROTHROMBIN
     Indication: HAEMOSTASIS
     Dosage: 1750 IU, UNK
     Route: 042
     Dates: start: 20180417
  23. BERIPLEX P/N [Suspect]
     Active Substance: COAGULATION FACTOR IX HUMAN\COAGULATION FACTOR VII HUMAN\COAGULATION FACTOR X HUMAN\PROTEIN C\PROTEIN S HUMAN\PROTHROMBIN
     Indication: HAEMORRHAGE
  24. AMLODIPINE [Concomitant]
     Active Substance: AMLODIPINE BESYLATE
     Dosage: UNK
     Route: 048
     Dates: end: 20180417
  25. VALSARTAN. [Concomitant]
     Active Substance: VALSARTAN
     Dosage: UNK
     Route: 048
     Dates: end: 20180417

REACTIONS (2)
  - Haemorrhage [Fatal]
  - Drug ineffective [Fatal]

NARRATIVE: CASE EVENT DATE: 20180417
